FAERS Safety Report 7632871-X (Version None)
Quarter: 2011Q3

REPORT INFORMATION
  Report Type: 
  Country: None (occurrence: None)
  Receive Date: 20110725
  Receipt Date: 20110712
  Transmission Date: 20111222
  Serious: Yes (Hospitalization, Other)
  Sender: FDA-Public Use
  Company Number: PHHY2011DE63935

PATIENT
  Sex: Female
  Weight: 82 kg

DRUGS (5)
  1. SIMVASTATIN [Concomitant]
     Dosage: 20 MG, DAILY
     Route: 048
     Dates: end: 20101223
  2. TRIMIPRAMINE MALEATE [Suspect]
     Dosage: 25 MG, DAILY
     Route: 048
     Dates: start: 20101003, end: 20101223
  3. EUNERPAN [Suspect]
     Dosage: 50 MG, DAILY
     Route: 048
     Dates: start: 20101007, end: 20101212
  4. EUNERPAN [Suspect]
     Dosage: 25 MG, DAILY
     Route: 048
     Dates: start: 20101213, end: 20101223
  5. CLOZAPINE [Suspect]
     Dosage: 100 MG, DAILY
     Route: 048
     Dates: start: 20101101, end: 20101223

REACTIONS (13)
  - BLOOD ALKALINE PHOSPHATASE INCREASED [None]
  - VOMITING [None]
  - HEPATIC STEATOSIS [None]
  - DIARRHOEA [None]
  - HEPATIC ENZYME INCREASED [None]
  - GASTROENTERITIS [None]
  - ANTIPSYCHOTIC DRUG LEVEL ABOVE THERAPEUTIC [None]
  - ALANINE AMINOTRANSFERASE [None]
  - ASPARTATE AMINOTRANSFERASE [None]
  - GAMMA-GLUTAMYLTRANSFERASE INCREASED [None]
  - C-REACTIVE PROTEIN INCREASED [None]
  - NAUSEA [None]
  - HEPATIC NECROSIS [None]
